FAERS Safety Report 10190440 (Version 2)
Quarter: 2014Q2

REPORT INFORMATION
  Report Type: Spontaneous
  Country: US (occurrence: US)
  Receive Date: 20140522
  Receipt Date: 20140619
  Transmission Date: 20141212
  Serious: No
  Sender: FDA-Public Use
  Company Number: US-009507513-1405USA000746

PATIENT
  Age: 66 Year
  Sex: Female
  Weight: 67.12 kg

DRUGS (3)
  1. OXYTROL FOR WOMEN [Suspect]
     Indication: MICTURITION URGENCY
     Dosage: 1 DF, Q4D
     Route: 062
     Dates: start: 20140423
  2. NATURAL SOURCES RAW THYROID [Concomitant]
     Indication: HYPOTHYROIDISM
     Dosage: UNK, UNKNOWN
  3. HORMONES (UNSPECIFIED) [Concomitant]
     Indication: HORMONE REPLACEMENT THERAPY
     Dosage: UNK, UNKNOWN

REACTIONS (4)
  - Malaise [Unknown]
  - Chills [Unknown]
  - Nausea [Unknown]
  - Diarrhoea [Unknown]
